FAERS Safety Report 11499527 (Version 1)
Quarter: 2015Q3

REPORT INFORMATION
  Report Type: Spontaneous
  Country: JP (occurrence: JP)
  Receive Date: 20150914
  Receipt Date: 20150914
  Transmission Date: 20151125
  Serious: Yes (Hospitalization, Other)
  Sender: FDA-Public Use
  Company Number: JP-BRISTOL-MYERS SQUIBB COMPANY-BMS-2015-045931

PATIENT
  Age: 74 Year
  Sex: Male
  Weight: 56 kg

DRUGS (5)
  1. ELPLAT [Concomitant]
     Active Substance: OXALIPLATIN
     Indication: COLORECTAL CANCER
     Dosage: UNK.130 BODY.TOTAL 5 TIMES
     Route: 041
     Dates: start: 20150331
  2. ERBITUX [Suspect]
     Active Substance: CETUXIMAB
     Dosage: UNK, QWK.382/BODY/DAY,TOTAL 9 TIMES.LAST DOSE ON 24JUN15
     Route: 041
     Dates: start: 20150408
  3. 5-FLUOROURACIL                     /00098801/ [Concomitant]
     Active Substance: FLUOROURACIL
     Indication: COLORECTAL CANCER
     Dosage: 1 DF, UNK=612/BODY/DAY. TOTAL 5 TIMES
     Route: 040
     Dates: start: 20150331
  4. ERBITUX [Suspect]
     Active Substance: CETUXIMAB
     Indication: COLORECTAL CANCER
     Dosage: UNK, QWK.612/BODY/DAY,
     Route: 041
     Dates: start: 20150331, end: 20150331
  5. 5-FLUOROURACIL                     /00098801/ [Concomitant]
     Active Substance: FLUOROURACIL
     Dosage: 1 DF, UNK=3673/BODY/DAY. TOTAL 5 TIMES
     Route: 041
     Dates: start: 20150331

REACTIONS (2)
  - Fall [Recovering/Resolving]
  - Soft tissue infection [Recovered/Resolved]

NARRATIVE: CASE EVENT DATE: 20150629
